FAERS Safety Report 6065046-9 (Version None)
Quarter: 2009Q1

REPORT INFORMATION
  Report Type: 
  Country: None (occurrence: None)
  Receive Date: 20090204
  Receipt Date: 20090126
  Transmission Date: 20090719
  Serious: Yes (Hospitalization)
  Sender: FDA-Public Use
  Company Number: SE-PFIZER INC-2009160664

PATIENT

DRUGS (3)
  1. TOLTERODINE TARTRATE [Interacting]
     Route: 048
     Dates: end: 20081212
  2. SOLIFENACIN [Suspect]
     Indication: PROSTATISM
     Dosage: UNK
     Route: 048
  3. NORMORIX MITE [Concomitant]
     Dosage: UNK
     Route: 048

REACTIONS (1)
  - ORTHOSTATIC HYPOTENSION [None]
